FAERS Safety Report 7608526-4 (Version None)
Quarter: 2011Q3

REPORT INFORMATION
  Report Type: 
  Country: None (occurrence: None)
  Receive Date: 20110714
  Receipt Date: 20110701
  Transmission Date: 20111222
  Serious: Yes (Hospitalization)
  Sender: FDA-Public Use
  Company Number: PHHY2011MX59366

PATIENT
  Sex: Female

DRUGS (2)
  1. GLUCOPHAGE [Concomitant]
     Dosage: 1 DF, DAILY
     Route: 048
     Dates: start: 20110601
  2. DIOVAN HCT [Suspect]
     Indication: HYPERTENSION
     Dosage: 1 DF DAILY, VALS 160MG AND HYDR 25 MG
     Dates: start: 20030601

REACTIONS (2)
  - EYE HAEMORRHAGE [None]
  - BLINDNESS [None]
